FAERS Safety Report 23880358 (Version 1)
Quarter: 2024Q2

REPORT INFORMATION
  Report Type: Spontaneous
  Country: US (occurrence: US)
  Receive Date: 20240521
  Receipt Date: 20240521
  Transmission Date: 20240715
  Serious: No
  Sender: FDA-Public Use
  Company Number: US-BAYER-2024A071904

PATIENT
  Age: 29 Year
  Sex: Male

DRUGS (1)
  1. JIVI [Suspect]
     Active Substance: DAMOCTOCOG ALFA PEGOL
     Dosage: 3500 IU, (3500 UNITS, INFUSION)

REACTIONS (1)
  - Wisdom teeth removal [None]

NARRATIVE: CASE EVENT DATE: 20240514
